FAERS Safety Report 6272357-0 (Version None)
Quarter: 2009Q3

REPORT INFORMATION
  Report Type: 
  Country: None (occurrence: None)
  Receive Date: 20090713
  Receipt Date: 20090127
  Transmission Date: 20100115
  Serious: No
  Sender: FDA-Public Use
  Company Number: 2008BM000247

PATIENT
  Age: 23 Year
  Sex: Female
  Weight: 83.9154 kg

DRUGS (12)
  1. KUVAN [Suspect]
     Indication: PHENYLKETONURIA
     Dosage: SEE IMAGE
     Route: 048
     Dates: start: 20080410, end: 20080411
  2. KUVAN [Suspect]
     Indication: PHENYLKETONURIA
     Dosage: SEE IMAGE
     Route: 048
     Dates: start: 20080412, end: 20080412
  3. KUVAN [Suspect]
     Indication: PHENYLKETONURIA
     Dosage: SEE IMAGE
     Route: 048
     Dates: start: 20080413, end: 20080413
  4. KUVAN [Suspect]
     Indication: PHENYLKETONURIA
     Dosage: SEE IMAGE
     Route: 048
     Dates: start: 20080414, end: 20080414
  5. KUVAN [Suspect]
     Indication: PHENYLKETONURIA
     Dosage: SEE IMAGE
     Route: 048
     Dates: start: 20080415, end: 20080529
  6. KUVAN [Suspect]
     Indication: PHENYLKETONURIA
     Dosage: SEE IMAGE
     Route: 048
     Dates: start: 20080609, end: 20080609
  7. KUVAN [Suspect]
     Indication: PHENYLKETONURIA
     Dosage: SEE IMAGE
     Route: 048
     Dates: start: 20080713, end: 20080901
  8. KUVAN [Suspect]
     Indication: PHENYLKETONURIA
     Dosage: SEE IMAGE
     Route: 048
     Dates: start: 20080930, end: 20090301
  9. KUVAN [Suspect]
     Indication: PHENYLKETONURIA
     Dosage: SEE IMAGE
     Route: 048
     Dates: start: 20090317
  10. LEVODOPA (CON.) [Concomitant]
  11. DYAZIDE (CON.) [Concomitant]
  12. MEDROXYPROGESTERONE (CON.) [Concomitant]

REACTIONS (35)
  - ABDOMINAL PAIN [None]
  - ABDOMINAL PAIN UPPER [None]
  - BALANCE DISORDER [None]
  - BODY TEMPERATURE [None]
  - BODY TEMPERATURE INCREASED [None]
  - COORDINATION ABNORMAL [None]
  - DIARRHOEA [None]
  - DIZZINESS [None]
  - DYSKINESIA [None]
  - DYSPHAGIA [None]
  - ENURESIS [None]
  - FACIAL PAIN [None]
  - FALL [None]
  - FEELING COLD [None]
  - FEELING JITTERY [None]
  - FLATULENCE [None]
  - HEART RATE INCREASED [None]
  - HYPERAESTHESIA [None]
  - IRRITABILITY [None]
  - LETHARGY [None]
  - MASTICATION DISORDER [None]
  - MUSCLE SPASMS [None]
  - MUSCLE TWITCHING [None]
  - MUSCULOSKELETAL STIFFNESS [None]
  - MYALGIA [None]
  - NERVOUS SYSTEM DISORDER [None]
  - NERVOUSNESS [None]
  - PAIN [None]
  - POOR QUALITY SLEEP [None]
  - POSTURE ABNORMAL [None]
  - PSYCHOMOTOR HYPERACTIVITY [None]
  - RESPIRATORY RATE [None]
  - RESPIRATORY RATE INCREASED [None]
  - SLUGGISHNESS [None]
  - TENSION [None]
